FAERS Safety Report 23432552 (Version 4)
Quarter: 2024Q3

REPORT INFORMATION
  Report Type: Spontaneous
  Country: CA (occurrence: CA)
  Receive Date: 20240123
  Receipt Date: 20240821
  Transmission Date: 20241017
  Serious: Yes (Other)
  Sender: PFIZER
  Company Number: CA-PFIZER INC-202300304782

PATIENT
  Age: 40 Year
  Sex: Female

DRUGS (3)
  1. ABRILADA [Suspect]
     Active Substance: ADALIMUMAB-AFZB
     Indication: Ankylosing spondylitis
     Dosage: 40 MG, EVERY 2 WEEKS
     Route: 058
     Dates: start: 20230912
  2. ABRILADA [Suspect]
     Active Substance: ADALIMUMAB-AFZB
     Dosage: 40 MG, EVERY 2 WEEKS (3RD SHOT)
     Route: 058
     Dates: start: 20231010
  3. ABRILADA [Suspect]
     Active Substance: ADALIMUMAB-AFZB
     Dosage: 40 MG, EVERY 2 WEEKS
     Route: 058

REACTIONS (11)
  - Tooth extraction [Unknown]
  - Drug ineffective [Unknown]
  - Tooth infection [Recovering/Resolving]
  - Fatigue [Recovering/Resolving]
  - Oropharyngeal pain [Recovered/Resolved]
  - Tonsillar hypertrophy [Recovered/Resolved]
  - Pain [Unknown]
  - Injection site erythema [Recovering/Resolving]
  - Pyrexia [Recovered/Resolved]
  - Nausea [Unknown]
  - Nasopharyngitis [Recovered/Resolved]

NARRATIVE: CASE EVENT DATE: 20230101
